FAERS Safety Report 13527731 (Version 3)
Quarter: 2017Q3

REPORT INFORMATION
  Report Type: Spontaneous
  Country: IE (occurrence: IE)
  Receive Date: 20170509
  Receipt Date: 20170713
  Transmission Date: 20171127
  Serious: Yes (Hospitalization, Other)
  Sender: FDA-Public Use
  Company Number: IE-JNJFOC-20170506005

PATIENT
  Age: 49 Year
  Sex: Female

DRUGS (7)
  1. PANTOPRAZOLE [Concomitant]
     Active Substance: PANTOPRAZOLE
     Route: 065
  2. ASACOL [Concomitant]
     Active Substance: MESALAMINE
     Indication: COLITIS ULCERATIVE
     Route: 065
  3. CERAZET [Concomitant]
     Route: 065
  4. FOLIC ACID. [Concomitant]
     Active Substance: FOLIC ACID
     Route: 065
  5. NEO-CYTAMEN [Concomitant]
     Route: 065
  6. CALCIUM WITH D3 [Concomitant]
     Route: 065
  7. REMICADE [Suspect]
     Active Substance: INFLIXIMAB
     Indication: COLITIS ULCERATIVE
     Route: 042
     Dates: start: 20170412, end: 20170412

REACTIONS (7)
  - Tachycardia [Unknown]
  - Pericardial effusion [Recovering/Resolving]
  - Atrial fibrillation [Recovered/Resolved]
  - Electrocardiogram ST segment elevation [Unknown]
  - Cardiac tamponade [Recovered/Resolved]
  - Chest pain [Recovering/Resolving]
  - Dyspnoea [Unknown]

NARRATIVE: CASE EVENT DATE: 20170414
